FAERS Safety Report 16842423 (Version 1)
Quarter: 2019Q3

REPORT INFORMATION
  Report Type: Spontaneous
  Country: TW (occurrence: TW)
  Receive Date: 20190924
  Receipt Date: 20190924
  Transmission Date: 20191005
  Serious: Yes (Hospitalization)
  Sender: FDA-Public Use
  Company Number: TW-ROCHE-2403038

PATIENT
  Age: 59 Year
  Sex: Male

DRUGS (14)
  1. TRAMADOL. [Concomitant]
     Active Substance: TRAMADOL
  2. FEBUXOSTAT. [Concomitant]
     Active Substance: FEBUXOSTAT
  3. FOLIC ACID. [Concomitant]
     Active Substance: FOLIC ACID
  4. TACROLIMUS. [Concomitant]
     Active Substance: TACROLIMUS
     Indication: LIVER TRANSPLANT
     Route: 065
  5. PRIMPERAN [Concomitant]
     Active Substance: METOCLOPRAMIDE HYDROCHLORIDE
  6. SENNOSIDES. [Concomitant]
     Active Substance: SENNOSIDES
  7. GLIMEPIRIDE. [Concomitant]
     Active Substance: GLIMEPIRIDE
  8. LANSOPRAZOLE. [Concomitant]
     Active Substance: LANSOPRAZOLE
  9. DOMPERIDONE [Concomitant]
     Active Substance: DOMPERIDONE
  10. CELLCEPT [Suspect]
     Active Substance: MYCOPHENOLATE MOFETIL\MYCOPHENOLATE MOFETIL HYDROCHLORIDE
     Indication: LIVER TRANSPLANT
     Route: 065
     Dates: start: 201101
  11. EVEROLIMUS. [Concomitant]
     Active Substance: EVEROLIMUS
     Indication: LIVER TRANSPLANT
     Route: 065
  12. KETOSTERIL [Concomitant]
     Active Substance: AMINO ACIDS
  13. NOVAMIN [PROCHLORPERAZINE MALEATE] [Concomitant]
  14. NEWZYME [Concomitant]

REACTIONS (6)
  - Hypoglycaemia [Unknown]
  - Altered state of consciousness [Unknown]
  - Disseminated tuberculosis [Unknown]
  - Acute kidney injury [Unknown]
  - Perforated ulcer [Unknown]
  - Hypercalcaemia [Unknown]

NARRATIVE: CASE EVENT DATE: 20190301
